FAERS Safety Report 15530208 (Version 1)
Quarter: 2018Q4

REPORT INFORMATION
  Report Type: Report from Study
  Country: TH (occurrence: TH)
  Receive Date: 20181018
  Receipt Date: 20181018
  Transmission Date: 20190205
  Serious: Yes (Life-Threatening, Hospitalization)
  Sender: FDA-Public Use
  Company Number: PHHO2017TH010686

PATIENT
  Age: 60 Year
  Sex: Male
  Weight: 59 kg

DRUGS (7)
  1. COMPARATOR DOCETAXEL [Suspect]
     Active Substance: DOCETAXEL
     Dosage: 48 MG/M2, Q3W
     Route: 042
     Dates: start: 20170928
  2. NO TREATMENT RECEIVED [Suspect]
     Active Substance: UNSPECIFIED INGREDIENT
     Indication: NASOPHARYNGEAL CANCER
     Dosage: NO TREATMENT
     Route: 065
  3. COMPARATOR DOCETAXEL [Suspect]
     Active Substance: DOCETAXEL
     Dosage: 60 MG/M2, Q3W
     Route: 042
     Dates: start: 20170816
  4. NO TREATMENT RECEIVED [Suspect]
     Active Substance: UNSPECIFIED INGREDIENT
     Route: 042
     Dates: start: 20170928
  5. COMPARATOR DOCETAXEL [Suspect]
     Active Substance: DOCETAXEL
     Indication: NASOPHARYNGEAL CANCER
     Dosage: 75 MG/M2, Q3W
     Route: 042
     Dates: start: 20170711
  6. NO TREATMENT RECEIVED [Suspect]
     Active Substance: UNSPECIFIED INGREDIENT
     Route: 042
     Dates: start: 20170711
  7. NO TREATMENT RECEIVED [Suspect]
     Active Substance: UNSPECIFIED INGREDIENT
     Route: 042
     Dates: start: 20170816

REACTIONS (8)
  - Conjunctivitis [Recovered/Resolved]
  - Febrile neutropenia [Recovered/Resolved]
  - Diarrhoea [Recovered/Resolved]
  - Hypokalaemia [Recovering/Resolving]
  - Hypokalaemia [Recovering/Resolving]
  - Febrile neutropenia [Recovered/Resolved]
  - Diarrhoea [Recovering/Resolving]
  - Stomatitis [Recovered/Resolved]

NARRATIVE: CASE EVENT DATE: 20170715
